FAERS Safety Report 10185709 (Version 1)
Quarter: 2014Q2

REPORT INFORMATION
  Report Type: Spontaneous
  Country: US (occurrence: None)
  Receive Date: 20140520
  Receipt Date: 20140520
  Transmission Date: 20141212
  Serious: Yes (Other)
  Sender: FDA-Public Use
  Company Number: None

PATIENT
  Age: 54 Year
  Sex: Female

DRUGS (7)
  1. DIVALPROEX [Suspect]
     Indication: BIPOLAR DISORDER
     Dosage: 2 TABS
     Route: 048
     Dates: start: 20130801, end: 20140301
  2. VICTOZA [Concomitant]
  3. SIMVASTATIN [Concomitant]
  4. SINGULAIR [Concomitant]
  5. METFORMIN [Concomitant]
  6. GLIPIZIDE [Concomitant]
  7. FENOFIBRATE [Concomitant]

REACTIONS (5)
  - Mania [None]
  - Irritability [None]
  - Tachyphrenia [None]
  - Insomnia [None]
  - Product substitution issue [None]
